FAERS Safety Report 23578815 (Version 2)
Quarter: 2024Q1

REPORT INFORMATION
  Report Type: Spontaneous
  Country: TR (occurrence: TR)
  Receive Date: 20240229
  Receipt Date: 20240308
  Transmission Date: 20240409
  Serious: Yes (Other)
  Sender: FDA-Public Use
  Company Number: TR-002147023-NVSC2024TR039039

PATIENT
  Age: 66 Year
  Sex: Male

DRUGS (2)
  1. EXELON [Suspect]
     Active Substance: RIVASTIGMINE TARTRATE
     Indication: Dementia
     Dosage: UNK (SINCE 2022)
     Route: 065
     Dates: start: 2022
  2. EXELON [Suspect]
     Active Substance: RIVASTIGMINE TARTRATE
     Indication: Dementia
     Dosage: UNK (IN THE MORNING)
     Route: 065

REACTIONS (3)
  - Cerebral haemorrhage [Unknown]
  - Vomiting [Unknown]
  - Product supply issue [Unknown]
